FAERS Safety Report 21980656 (Version 1)
Quarter: 2023Q1

REPORT INFORMATION
  Report Type: Spontaneous
  Country: CA (occurrence: CA)
  Receive Date: 20230211
  Receipt Date: 20230211
  Transmission Date: 20230418
  Serious: Yes (Life-Threatening, Hospitalization, Other)
  Sender: FDA-Public Use
  Company Number: CA-AMGEN-CANSP2023022901

PATIENT
  Age: 46 Year
  Sex: Male

DRUGS (10)
  1. FILGRASTIM [Suspect]
     Active Substance: FILGRASTIM
     Indication: Haematopoietic stem cell mobilisation
     Dosage: 10 MICROGRAM/KILOGRAM, QD (10 DAYS)
     Route: 058
  2. FILGRASTIM [Suspect]
     Active Substance: FILGRASTIM
     Dosage: UNK, QD (DAY 1 UNTIL NEUTROPHIL ENGRAFTMENT)
     Route: 058
  3. TACROLIMUS [Concomitant]
     Active Substance: TACROLIMUS
     Indication: Immunosuppression
     Dosage: 2 MILLIGRAM, BID
  4. AZATHIOPRINE [Concomitant]
     Active Substance: AZATHIOPRINE
     Indication: Immunosuppression
     Dosage: 175 MILLIGRAM, QD
  5. CYCLOPHOSPHAMIDE [Concomitant]
     Active Substance: CYCLOPHOSPHAMIDE
     Indication: Haematopoietic stem cell mobilisation
     Dosage: UNK, 2.5 GRAM PER SQUARE METRE
     Route: 040
  6. CYCLOPHOSPHAMIDE [Concomitant]
     Active Substance: CYCLOPHOSPHAMIDE
     Indication: Prophylaxis
     Dosage: 50 MILLIGRAM/KILOGRAM, QD (FOR 4 DAY)
     Route: 040
  7. EVEROLIMUS [Concomitant]
     Active Substance: EVEROLIMUS
     Dosage: UNK, 3-7 NG/ML
  8. BUSULFAN [Concomitant]
     Active Substance: BUSULFAN
     Indication: Prophylaxis
     Dosage: UNK UNK, QD, 2.4 MILLIGRAM/KILOGRAM (FOR 4 DAY)
     Route: 040
  9. LAPINE T-LYMPHOCYTE IMMUNE GLOBULIN [Concomitant]
     Active Substance: LAPINE T-LYMPHOCYTE IMMUNE GLOBULIN
     Indication: Prophylaxis
     Dosage: UNK UNK, QD (1.25 MILLIGRAM/KILOGRAM)
     Route: 040
  10. Imunoglobulin [Concomitant]
     Indication: Prophylaxis
     Dosage: UNK UNK, QMO (0.5 GRAM PER KILOGRAM FOR 12 MO POST-AHSCT)

REACTIONS (9)
  - Neutropenic colitis [Unknown]
  - Escherichia infection [Unknown]
  - Bacteraemia [Unknown]
  - Febrile neutropenia [Recovered/Resolved]
  - Cytomegalovirus test positive [Unknown]
  - Mucosal inflammation [Unknown]
  - Alanine aminotransferase increased [Recovered/Resolved]
  - Aspartate aminotransferase increased [Recovered/Resolved]
  - Blood alkaline phosphatase increased [Recovered/Resolved]
